FAERS Safety Report 5292331-0 (Version None)
Quarter: 2007Q2

REPORT INFORMATION
  Report Type: 
  Country: None (occurrence: None)
  Receive Date: 20070410
  Receipt Date: 20070329
  Transmission Date: 20071010
  Serious: Yes (Disabling, Other)
  Sender: FDA-Public Use
  Company Number: CA-ELI_LILLY_AND_COMPANY-CA200702005710

PATIENT
  Age: 89 Year
  Sex: Female

DRUGS (7)
  1. FORTEO [Suspect]
     Indication: OSTEOPOROSIS
     Dosage: 20 UG, DAILY (1/D)
     Route: 058
     Dates: start: 20051110
  2. COZAAR [Concomitant]
     Indication: HYPERTENSION
  3. LASIX [Concomitant]
  4. CALCIUM [Concomitant]
  5. VITAMIN B-12 [Concomitant]
     Route: 058
  6. VITAMIN D [Concomitant]
  7. SYNTHROID [Concomitant]

REACTIONS (2)
  - ATRIAL FIBRILLATION [None]
  - JOINT SWELLING [None]
